FAERS Safety Report 9091221 (Version 1)
Quarter: 2013Q1

REPORT INFORMATION
  Report Type: Report from Study
  Country: US (occurrence: US)
  Receive Date: 20130201
  Receipt Date: 20130201
  Transmission Date: 20140127
  Serious: No
  Sender: FDA-Public Use
  Company Number: US-ABBOTT-12P-163-1020174-00

PATIENT
  Age: 18 Year
  Sex: Female

DRUGS (8)
  1. HUMIRA [Suspect]
     Indication: CROHN^S DISEASE
     Dates: start: 20111201
  2. APRISO [Concomitant]
     Indication: CROHN^S DISEASE
  3. BENTYL [Concomitant]
     Indication: MUSCLE SPASMS
     Dosage: AS NEEDED
  4. IMODIUM [Concomitant]
     Indication: PRODUCT USED FOR UNKNOWN INDICATION
     Dosage: 1 AFTER EACH LOOSE STOOL
  5. MUCINEX D [Concomitant]
     Indication: NASOPHARYNGITIS
  6. MULTIVITAMINS [Concomitant]
     Indication: BLOOD IRON DECREASED
     Dosage: EVERY DAY
  7. TYLENOL [Concomitant]
     Indication: PAIN
  8. TYLENOL [Concomitant]
     Indication: PYREXIA

REACTIONS (3)
  - Crohn^s disease [Recovered/Resolved]
  - Abdominal pain [Recovered/Resolved]
  - Diarrhoea [Unknown]
